FAERS Safety Report 9539549 (Version 1)
Quarter: 2013Q3

REPORT INFORMATION
  Report Type: Spontaneous
  Country: CA (occurrence: CA)
  Receive Date: 20130920
  Receipt Date: 20130920
  Transmission Date: 20140515
  Serious: Yes (Life-Threatening, Hospitalization, Other)
  Sender: FDA-Public Use
  Company Number: CA-ROCHE-1274141

PATIENT
  Age: 61 Year
  Sex: Female
  Weight: 65 kg

DRUGS (6)
  1. RITUXAN [Suspect]
     Indication: PRODUCT USED FOR UNKNOWN INDICATION
     Dosage: THERAPY DURATION: 2 YEARS
     Route: 042
  2. DEXAMETHASONE [Concomitant]
     Route: 065
  3. PERINDOPRIL [Concomitant]
     Route: 065
  4. QUININE [Concomitant]
     Route: 065
  5. RANITIDINE [Concomitant]
     Route: 065
  6. TYLENOL WITH CODEINE [Concomitant]

REACTIONS (5)
  - Aphasia [Unknown]
  - Central nervous system lymphoma [Unknown]
  - Confusional state [Unknown]
  - JC virus test positive [Unknown]
  - Progressive multifocal leukoencephalopathy [Unknown]
